FAERS Safety Report 8020691-6 (Version None)
Quarter: 2012Q1

REPORT INFORMATION
  Report Type: 
  Country: None (occurrence: None)
  Receive Date: 20120103
  Receipt Date: 20111222
  Transmission Date: 20120608
  Serious: Yes (Other)
  Sender: FDA-Public Use
  Company Number: US-ASTRAZENECA-2011SE78080

PATIENT
  Age: 48 Year
  Sex: Female

DRUGS (3)
  1. SEROQUEL [Suspect]
     Indication: SLEEP DISORDER
     Route: 048
  2. SEROQUEL [Suspect]
     Indication: DEPRESSION
     Route: 048
  3. SEROQUEL [Suspect]
     Indication: NERVOUSNESS
     Route: 048

REACTIONS (8)
  - CRYING [None]
  - DRUG DOSE OMISSION [None]
  - OFF LABEL USE [None]
  - NEOPLASM MALIGNANT [None]
  - INSOMNIA [None]
  - FEELING ABNORMAL [None]
  - DEPRESSION [None]
  - FEELING OF DESPAIR [None]
